FAERS Safety Report 10159704 (Version 1)
Quarter: 2014Q2

REPORT INFORMATION
  Report Type: Spontaneous
  Country: US (occurrence: US)
  Receive Date: 20140508
  Receipt Date: 20140508
  Transmission Date: 20141212
  Serious: No
  Sender: FDA-Public Use
  Company Number: US-GLAXOSMITHKLINE-A1022563A

PATIENT
  Age: 51 Year
  Sex: Female

DRUGS (4)
  1. TYKERB [Suspect]
     Indication: PRODUCT USED FOR UNKNOWN INDICATION
     Dosage: 1250MG IN THE MORNING
     Route: 048
  2. NEUPOGEN [Suspect]
     Indication: PRODUCT USED FOR UNKNOWN INDICATION
     Dosage: 300MCG UNKNOWN
     Route: 065
  3. TEMODAR [Concomitant]
  4. ONDANSETRON [Concomitant]

REACTIONS (3)
  - Musculoskeletal chest pain [Unknown]
  - Chest pain [Unknown]
  - Constipation [Unknown]
